FAERS Safety Report 4840689-6 (Version None)
Quarter: 2005Q4

REPORT INFORMATION
  Report Type: 
  Country: None (occurrence: None)
  Receive Date: 20051027
  Receipt Date: 20050726
  Transmission Date: 20060501
  Serious: Yes (Other)
  Sender: FDA-Public Use
  Company Number: HQWYE580728JUL05

PATIENT
  Age: 65 Year
  Sex: Female

DRUGS (3)
  1. PREMARIN [Suspect]
     Indication: HORMONE REPLACEMENT THERAPY
     Dosage: ORAL
     Route: 048
     Dates: start: 19940101, end: 19980101
  2. MEDROXYPROGESTERONE ACETATE [Suspect]
  3. PREMPHASE 14/14 [Suspect]

REACTIONS (1)
  - BREAST CANCER [None]
